FAERS Safety Report 20605830 (Version 3)
Quarter: 2022Q2

REPORT INFORMATION
  Report Type: Report from Study
  Country: US (occurrence: US)
  Receive Date: 20220317
  Receipt Date: 20220419
  Transmission Date: 20220720
  Serious: No
  Sender: FDA-Public Use
  Company Number: US-NOVARTISTESTPH-NVSC2022US059769

PATIENT
  Sex: Female

DRUGS (4)
  1. TASIGNA [Suspect]
     Active Substance: NILOTINIB
     Indication: Philadelphia positive chronic myeloid leukaemia
     Dosage: 400 MG, BID
     Route: 048
  2. TASIGNA [Suspect]
     Active Substance: NILOTINIB
     Indication: Philadelphia chromosome positive
     Dosage: 300 MG, BID
     Route: 048
     Dates: start: 20220324
  3. TASIGNA [Suspect]
     Active Substance: NILOTINIB
     Indication: Chronic myeloid leukaemia
  4. GLEEVEC [Suspect]
     Active Substance: IMATINIB MESYLATE
     Indication: Philadelphia positive chronic myeloid leukaemia
     Dosage: 300 MG
     Route: 048

REACTIONS (15)
  - Dysphagia [Recovering/Resolving]
  - Secretion discharge [Unknown]
  - Asthenia [Recovering/Resolving]
  - Anaemia [Not Recovered/Not Resolved]
  - Influenza [Not Recovered/Not Resolved]
  - Headache [Recovering/Resolving]
  - Nausea [Recovering/Resolving]
  - Myalgia [Not Recovered/Not Resolved]
  - Diarrhoea [Recovering/Resolving]
  - Arthralgia [Not Recovered/Not Resolved]
  - Weight decreased [Not Recovered/Not Resolved]
  - Eye pain [Not Recovered/Not Resolved]
  - Gastrooesophageal reflux disease [Not Recovered/Not Resolved]
  - Oropharyngeal pain [Recovering/Resolving]
  - Product dose omission issue [Not Recovered/Not Resolved]
